FAERS Safety Report 7769046-X (Version None)
Quarter: 2011Q3

REPORT INFORMATION
  Report Type: 
  Country: None (occurrence: None)
  Receive Date: 20110922
  Receipt Date: 20101221
  Transmission Date: 20111222
  Serious: No
  Sender: FDA-Public Use
  Company Number: US-ASTRAZENECA-2010SE60244

PATIENT
  Age: 62 Year
  Sex: Male

DRUGS (2)
  1. ZYPREXA [Concomitant]
  2. SEROQUEL [Suspect]
     Route: 048

REACTIONS (2)
  - HYPERSOMNIA [None]
  - WEIGHT INCREASED [None]
